FAERS Safety Report 8413596-X (Version None)
Quarter: 2012Q2

REPORT INFORMATION
  Report Type: 
  Country: None (occurrence: None)
  Receive Date: 20120605
  Receipt Date: 20120523
  Transmission Date: 20120825
  Serious: Yes (Hospitalization, Other)
  Sender: FDA-Public Use
  Company Number: JP-ROCHE-1073021

PATIENT
  Sex: Female
  Weight: 53 kg

DRUGS (2)
  1. XELODA [Suspect]
     Indication: COLON CANCER
     Dosage: 2 WEEKS ADMINISTRATION FOLLOWED BY 1 WEEK REST
     Route: 048
     Dates: start: 20111013, end: 20120312
  2. PYDOXAL [Concomitant]
     Indication: PROPHYLAXIS
     Route: 048
     Dates: start: 20111013, end: 20120312

REACTIONS (4)
  - ERYTHEMA NODOSUM [None]
  - IMMUNOSUPPRESSION [None]
  - PALMAR-PLANTAR ERYTHRODYSAESTHESIA SYNDROME [None]
  - INFECTION [None]
